FAERS Safety Report 25195931 (Version 2)
Quarter: 2025Q4

REPORT INFORMATION
  Report Type: Spontaneous
  Country: US (occurrence: US)
  Receive Date: 20250415
  Receipt Date: 20251116
  Transmission Date: 20260118
  Serious: No
  Sender: SANOFI AVENTIS
  Company Number: US-SA-2025SA104871

PATIENT
  Sex: Male

DRUGS (2)
  1. DUPIXENT [Suspect]
     Active Substance: DUPILUMAB
     Indication: Dermatitis allergic
     Dosage: 300 MG, QOW
     Route: 058
     Dates: start: 20220408
  2. TACROLIMUS [Concomitant]
     Active Substance: TACROLIMUS
     Dosage: UNK

REACTIONS (7)
  - Infection [Unknown]
  - Sleep disorder due to a general medical condition [Unknown]
  - Upper respiratory tract infection [Not Recovered/Not Resolved]
  - Dermatitis allergic [Unknown]
  - Condition aggravated [Unknown]
  - Rash [Unknown]
  - Discomfort [Unknown]
